FAERS Safety Report 20232219 (Version 1)
Quarter: 2021Q4

REPORT INFORMATION
  Report Type: Spontaneous
  Country: IT (occurrence: IT)
  Receive Date: 20211227
  Receipt Date: 20211227
  Transmission Date: 20220303
  Serious: Yes (Death)
  Sender: FDA-Public Use
  Company Number: IT-CELLTRION INC.-2021IT017531

PATIENT

DRUGS (15)
  1. RITUXIMAB [Suspect]
     Active Substance: RITUXIMAB
     Indication: Mantle cell lymphoma
     Dosage: 146 PATIENTS (94%) RECEIVED AT LEAST FOUR INDUCTION CYCLES.
  2. RITUXIMAB [Suspect]
     Active Substance: RITUXIMAB
     Dosage: 146 PATIENTS (94%) RECEIVED AT LEAST FOUR INDUCTION CYCLES.
  3. RITUXIMAB [Suspect]
     Active Substance: RITUXIMAB
     Dosage: 146 PATIENTS (94%) RECEIVED AT LEAST FOUR INDUCTION CYCLES.
  4. RITUXIMAB [Suspect]
     Active Substance: RITUXIMAB
     Dosage: 146 PATIENTS (94%) RECEIVED AT LEAST FOUR INDUCTION CYCLES.
  5. RITUXIMAB [Suspect]
     Active Substance: RITUXIMAB
     Dosage: 10 PATIENTS WHO WERE TREATED WITH LESS THAN FOUR CYCLES, EIGHT WERE TREATED WITH BR (15%), AND TWO W
  6. BENDAMUSTINE [Suspect]
     Active Substance: BENDAMUSTINE
     Indication: Mantle cell lymphoma
     Dosage: 146 PATIENTS (94%) RECEIVED AT LEAST FOUR INDUCTION CYCLES.
  7. BENDAMUSTINE [Suspect]
     Active Substance: BENDAMUSTINE
     Dosage: 146 PATIENTS (94%) RECEIVED AT LEAST FOUR INDUCTION CYCLES.
  8. BENDAMUSTINE [Suspect]
     Active Substance: BENDAMUSTINE
     Dosage: 146 PATIENTS (94%) RECEIVED AT LEAST FOUR INDUCTION CYCLES.
  9. BENDAMUSTINE [Suspect]
     Active Substance: BENDAMUSTINE
     Dosage: 146 PATIENTS (94%) RECEIVED AT LEAST FOUR INDUCTION CYCLES.
  10. BENDAMUSTINE [Suspect]
     Active Substance: BENDAMUSTINE
     Dosage: 10 PATIENTS WHO WERE TREATED WITH LESS THAN FOUR CYCLES, EIGHT WERE TREATED WITH BR (15%), AND TWO W
  11. CYTARABINE [Suspect]
     Active Substance: CYTARABINE
     Indication: Mantle cell lymphoma
     Dosage: 146 PATIENTS (94%) RECEIVED AT LEAST FOUR INDUCTION CYCLES
  12. CYTARABINE [Suspect]
     Active Substance: CYTARABINE
     Dosage: 146 PATIENTS (94%) RECEIVED AT LEAST FOUR INDUCTION CYCLES
  13. CYTARABINE [Suspect]
     Active Substance: CYTARABINE
     Dosage: 146 PATIENTS (94%) RECEIVED AT LEAST FOUR INDUCTION CYCLES
  14. CYTARABINE [Suspect]
     Active Substance: CYTARABINE
     Dosage: 146 PATIENTS (94%) RECEIVED AT LEAST FOUR INDUCTION CYCLES
  15. CYTARABINE [Suspect]
     Active Substance: CYTARABINE
     Dosage: 10 PATIENTS WHO WERE TREATED WITH LESS THAN FOUR CYCLES, EIGHT WERE TREATED WITH BR (15%), AND TWO W

REACTIONS (6)
  - Disease progression [Fatal]
  - Prostate cancer [Fatal]
  - Sarcoma [Fatal]
  - Death [Fatal]
  - Cardiac disorder [Fatal]
  - Off label use [Unknown]
